FAERS Safety Report 24878922 (Version 1)
Quarter: 2025Q1

REPORT INFORMATION
  Report Type: Spontaneous
  Country: US (occurrence: US)
  Receive Date: 20250123
  Receipt Date: 20250123
  Transmission Date: 20250409
  Serious: No
  Sender: CATALYST PHARMA
  Company Number: US-CATALYST PHARMACEUTICALS, INC-US-CATA-23-00074

PATIENT
  Sex: Male
  Weight: 78.912 kg

DRUGS (7)
  1. FIRDAPSE [Suspect]
     Active Substance: AMIFAMPRIDINE PHOSPHATE
     Indication: Myasthenic syndrome
     Dosage: 5 MG THREE TIMES A DAY, THEN INCREASED BY 5 MG EVERY FOUR DAYS UNTIL HE REACHED A MAX OF 10 MG THREE
     Route: 048
     Dates: start: 201811
  2. FIRDAPSE [Suspect]
     Active Substance: AMIFAMPRIDINE PHOSPHATE
     Dosage: 4 DOSAGE FORM, QD
     Route: 048
  3. FIRDAPSE [Suspect]
     Active Substance: AMIFAMPRIDINE PHOSPHATE
     Route: 048
  4. FIRDAPSE [Suspect]
     Active Substance: AMIFAMPRIDINE PHOSPHATE
     Dosage: 6 TABLETS TOTAL DAILY
     Route: 048
     Dates: start: 20240103, end: 20241004
  5. HUMIRA [Concomitant]
     Active Substance: ADALIMUMAB
     Indication: Product used for unknown indication
     Dosage: 20 MG UNDER THE SKIN EVERY OTHER WEEK
     Route: 058
  6. MESTINON [Concomitant]
     Active Substance: PYRIDOSTIGMINE BROMIDE
     Indication: Product used for unknown indication
     Dosage: 90 MG FOUR TIMES A DAY
     Route: 065
  7. IBUPROFEN [Concomitant]
     Active Substance: IBUPROFEN
     Indication: Product used for unknown indication
     Route: 065

REACTIONS (14)
  - Skin tightness [Recovered/Resolved]
  - Aphonia [Unknown]
  - Fatigue [Recovering/Resolving]
  - Coordination abnormal [Unknown]
  - Dysarthria [Unknown]
  - Dysphonia [Unknown]
  - Gait disturbance [Recovered/Resolved]
  - Pain [Recovered/Resolved]
  - Dry throat [Not Recovered/Not Resolved]
  - Paraesthesia [Recovered/Resolved]
  - Paraesthesia oral [Recovered/Resolved]
  - Dyspnoea [Unknown]
  - Treatment noncompliance [Unknown]
  - Therapy cessation [Unknown]

NARRATIVE: CASE EVENT DATE: 20240101
